FAERS Safety Report 6762609-X (Version None)
Quarter: 2010Q2

REPORT INFORMATION
  Report Type: 
  Country: None (occurrence: None)
  Receive Date: 20100609
  Receipt Date: 20100603
  Transmission Date: 20101027
  Serious: Yes (Other)
  Sender: FDA-Public Use
  Company Number: SE-MERCK-1006SWE00005

PATIENT
  Age: 10 Year
  Sex: Male

DRUGS (3)
  1. SINGULAIR [Suspect]
     Indication: ASTHMA
     Route: 048
     Dates: start: 20080101
  2. BUDESONIDE AND FORMOTEROL FUMARATE [Concomitant]
     Indication: ASTHMA
     Route: 065
  3. LORATADINE [Concomitant]
     Indication: HYPERSENSITIVITY
     Route: 065

REACTIONS (3)
  - AGGRESSION [None]
  - RESTLESSNESS [None]
  - SUICIDAL IDEATION [None]
